FAERS Safety Report 23643405 (Version 1)
Quarter: 2024Q1

REPORT INFORMATION
  Report Type: Spontaneous
  Country: US (occurrence: None)
  Receive Date: 20240316
  Receipt Date: 20240316
  Transmission Date: 20240410
  Serious: Yes (Hospitalization)
  Sender: FDA-Public Use
  Company Number: None

PATIENT
  Age: 60 Year
  Sex: Male
  Weight: 65.4 kg

DRUGS (3)
  1. FLUOROURACIL [Suspect]
     Active Substance: FLUOROURACIL
     Dates: end: 20240213
  2. LEUCOVORIN CALCIUM [Suspect]
     Active Substance: LEUCOVORIN CALCIUM
     Dates: end: 20240213
  3. ELOXATIN [Suspect]
     Active Substance: OXALIPLATIN
     Dates: end: 20240213

REACTIONS (17)
  - Dehydration [None]
  - Ascites [None]
  - Anaemia [None]
  - Acute kidney injury [None]
  - Muscular weakness [None]
  - Neutrophil count decreased [None]
  - Platelet count decreased [None]
  - Urinary tract infection [None]
  - Asthenia [None]
  - Haemoglobin decreased [None]
  - Peripheral swelling [None]
  - Urinary tract infection [None]
  - Device related infection [None]
  - Hyponatraemia [None]
  - Hypoalbuminaemia [None]
  - Hyperkalaemia [None]
  - Portal hypertension [None]

NARRATIVE: CASE EVENT DATE: 20240215
